FAERS Safety Report 14239721 (Version 1)
Quarter: 2017Q4

REPORT INFORMATION
  Report Type: Spontaneous
  Country: US (occurrence: US)
  Receive Date: 20171128
  Receipt Date: 20171128
  Transmission Date: 20180321
  Serious: No
  Sender: FDA-Public Use
  Company Number: None

PATIENT
  Age: 69 Year
  Sex: Male
  Weight: 81 kg

DRUGS (1)
  1. KEPPRA [Suspect]
     Active Substance: LEVETIRACETAM
     Indication: CONVULSION PROPHYLAXIS
     Dates: start: 20171020, end: 20171128

REACTIONS (5)
  - Asthenia [None]
  - Pruritus generalised [None]
  - Fatigue [None]
  - Somnolence [None]
  - Headache [None]

NARRATIVE: CASE EVENT DATE: 20171101
